FAERS Safety Report 18671444 (Version 2)
Quarter: 2021Q1

REPORT INFORMATION
  Report Type: Report from Study
  Country: CO (occurrence: CO)
  Receive Date: 20201228
  Receipt Date: 20210127
  Transmission Date: 20210419
  Serious: Yes (Hospitalization)
  Sender: FDA-Public Use
  Company Number: NVSC2019CO081704

PATIENT
  Age: 65 Year
  Sex: Female
  Weight: 54 kg

DRUGS (5)
  1. JADENU [Suspect]
     Active Substance: DEFERASIROX
     Indication: IRON OVERLOAD
     Dosage: 720 MG, QD (4X 180 MG)
     Route: 048
  2. JADENU [Suspect]
     Active Substance: DEFERASIROX
     Dosage: UNK
     Route: 048
  3. LEVOTHYROXINE. [Concomitant]
     Active Substance: LEVOTHYROXINE
     Indication: HYPOTHYROIDISM
     Dosage: 50 MG, Q24H (APPROXIMATELY 17 YEARS AGO)
     Route: 048
  4. FOLIC ACID. [Concomitant]
     Active Substance: FOLIC ACID
     Indication: PRODUCT USED FOR UNKNOWN INDICATION
     Dosage: 1 MG, Q24H (APPROXIMATELY 2 YEARS AGO)
     Route: 048
  5. JADENU [Suspect]
     Active Substance: DEFERASIROX
     Dosage: 80 MG, Q24H (STARTED MORE THAN 1 YEAR AGO)
     Route: 048

REACTIONS (16)
  - Cholelithiasis [Recovering/Resolving]
  - Nausea [Unknown]
  - Viral infection [Unknown]
  - Loss of consciousness [Unknown]
  - Decreased appetite [Unknown]
  - Adverse reaction [Recovering/Resolving]
  - Somnolence [Unknown]
  - Hepatic steatosis [Unknown]
  - Blood glucose increased [Unknown]
  - Abdominal discomfort [Unknown]
  - Illness [Unknown]
  - Blood bilirubin increased [Unknown]
  - Vomiting [Unknown]
  - Unresponsive to stimuli [Unknown]
  - General physical health deterioration [Unknown]
  - Dizziness [Unknown]

NARRATIVE: CASE EVENT DATE: 20201113
